FAERS Safety Report 10184171 (Version 1)
Quarter: 2014Q2

REPORT INFORMATION
  Report Type: Spontaneous
  Country: IT (occurrence: IT)
  Receive Date: 20140520
  Receipt Date: 20140520
  Transmission Date: 20141212
  Serious: Yes (Other)
  Sender: FDA-Public Use
  Company Number: IT-TEVA-482256ISR

PATIENT
  Age: 83 Year
  Sex: Male

DRUGS (3)
  1. AMIKACIN [Suspect]
     Indication: PNEUMONIA PSEUDOMONAL
     Route: 030
     Dates: start: 20140506, end: 20140506
  2. NIFEDICOR - 20 MG/ML GOCCE ORALI SOLUZIONE [Concomitant]
     Indication: PRODUCT USED FOR UNKNOWN INDICATION
  3. FUROSEMIDE [Concomitant]
     Indication: PRODUCT USED FOR UNKNOWN INDICATION
     Route: 043

REACTIONS (1)
  - Generalised erythema [Not Recovered/Not Resolved]
